FAERS Safety Report 14195569 (Version 1)
Quarter: 2017Q4

REPORT INFORMATION
  Report Type: Spontaneous
  Country: US (occurrence: US)
  Receive Date: 20171116
  Receipt Date: 20171116
  Transmission Date: 20180321
  Serious: No
  Sender: FDA-Public Use
  Company Number: US-ETHYPHARM USA CORP.-2016-EY-BP-US-00073

PATIENT
  Age: 27 Year
  Sex: Female

DRUGS (1)
  1. BUPRENORPHINE HYDROCHLORIDE. [Suspect]
     Active Substance: BUPRENORPHINE HYDROCHLORIDE
     Indication: DRUG DEPENDENCE
     Dates: start: 20160727

REACTIONS (3)
  - Product substitution issue [Unknown]
  - Hyperhidrosis [Unknown]
  - Maternal exposure during pregnancy [Unknown]

NARRATIVE: CASE EVENT DATE: 20160727
